FAERS Safety Report 9209566 (Version 1)
Quarter: 2013Q1

REPORT INFORMATION
  Report Type: Spontaneous
  Country: US (occurrence: None)
  Receive Date: 20120820
  Receipt Date: 20120820
  Transmission Date: 20140127
  Serious: No
  Sender: FDA-Public Use
  Company Number: 1000030439

PATIENT
  Age: 59 Year
  Sex: Female

DRUGS (3)
  1. VIIBRYD [Suspect]
     Indication: DEPRESSION
     Route: 048
     Dates: start: 20120509
  2. ESTRADIOL(ESTRADIOL)(ESTRADIOL) [Concomitant]
  3. ATIVAN(LORAZEPAM)(LORAZEPAM) [Concomitant]

REACTIONS (3)
  - Pain in extremity [None]
  - Malaise [None]
  - Muscle spasms [None]
